FAERS Safety Report 10475179 (Version 1)
Quarter: 2014Q3

REPORT INFORMATION
  Report Type: Spontaneous
  Country: US (occurrence: None)
  Receive Date: 20140924
  Receipt Date: 20140924
  Transmission Date: 20150326
  Serious: Yes (Disabling)
  Sender: FDA-Public Use
  Company Number: None

PATIENT
  Age: 80 Year
  Sex: Female
  Weight: 43.09 kg

DRUGS (3)
  1. LISINOPRIL. [Concomitant]
     Active Substance: LISINOPRIL
  2. PROLIA [Suspect]
     Active Substance: DENOSUMAB
     Indication: OSTEOPOROSIS
     Dates: start: 20131103
  3. BYSTOLIC [Concomitant]
     Active Substance: NEBIVOLOL HYDROCHLORIDE

REACTIONS (8)
  - Rash [None]
  - Blood pressure fluctuation [None]
  - Urinary tract infection [None]
  - Skin exfoliation [None]
  - Eye swelling [None]
  - Fatigue [None]
  - Burning sensation [None]
  - Dry skin [None]

NARRATIVE: CASE EVENT DATE: 201401
